FAERS Safety Report 21561641 (Version 2)
Quarter: 2022Q4

REPORT INFORMATION
  Report Type: Spontaneous
  Country: US (occurrence: US)
  Receive Date: 20221107
  Receipt Date: 20221126
  Transmission Date: 20230112
  Serious: Yes (Life-Threatening, Hospitalization)
  Sender: FDA-Public Use
  Company Number: US-TEVA-2022-US-2822744

PATIENT
  Age: 72 Year
  Sex: Male

DRUGS (4)
  1. MESNA [Suspect]
     Active Substance: MESNA
     Indication: Glomerulonephritis rapidly progressive
     Route: 065
  2. MESNA [Suspect]
     Active Substance: MESNA
     Indication: Glomerulonephritis rapidly progressive
  3. CYCLOPHOSPHAMIDE [Suspect]
     Active Substance: CYCLOPHOSPHAMIDE
     Indication: Glomerulonephritis rapidly progressive
     Route: 065
  4. CYCLOPHOSPHAMIDE [Suspect]
     Active Substance: CYCLOPHOSPHAMIDE
     Indication: Glomerulonephritis rapidly progressive

REACTIONS (1)
  - Drug ineffective [Unknown]
